FAERS Safety Report 10219801 (Version 2)
Quarter: 2014Q2

REPORT INFORMATION
  Report Type: Spontaneous
  Country: TW (occurrence: TW)
  Receive Date: 20140605
  Receipt Date: 20140611
  Transmission Date: 20141212
  Serious: Yes (Other)
  Sender: FDA-Public Use
  Company Number: PHHY2014TW068234

PATIENT
  Age: 37 Year
  Sex: Female

DRUGS (7)
  1. CARBAMAZEPINE [Suspect]
     Indication: TRIGEMINAL NEURALGIA
     Dosage: 800 MG, PER DAY
  2. CARBAMAZEPINE [Suspect]
     Dosage: 600 MG, PER DAY
  3. VALPROIC ACID [Suspect]
     Indication: TRIGEMINAL NEURALGIA
  4. BACLOFEN [Suspect]
     Indication: TRIGEMINAL NEURALGIA
  5. VOREN [Suspect]
     Indication: TRIGEMINAL NEURALGIA
  6. ACETAMINOPHEN (PARACETAMOL) [Suspect]
  7. DULOXETINE [Concomitant]
     Indication: DEPRESSION
     Dosage: 60 MG, PER DAY

REACTIONS (7)
  - Major depression [Not Recovered/Not Resolved]
  - Depressed mood [Unknown]
  - Decreased interest [Unknown]
  - Decreased activity [Unknown]
  - Distractibility [Unknown]
  - Suicidal ideation [Unknown]
  - Drug ineffective [Recovered/Resolved]
